APPROVED DRUG PRODUCT: DOSTINEX
Active Ingredient: CABERGOLINE
Strength: 0.5MG **Federal Register determination that product was not discontinued or withdrawn for safety or effectiveness reasons**
Dosage Form/Route: TABLET;ORAL
Application: N020664 | Product #001
Applicant: PFIZER INC
Approved: Dec 23, 1996 | RLD: Yes | RS: No | Type: DISCN